FAERS Safety Report 5907545-3 (Version None)
Quarter: 2008Q4

REPORT INFORMATION
  Report Type: 
  Country: None (occurrence: None)
  Receive Date: 20081003
  Receipt Date: 20080923
  Transmission Date: 20090506
  Serious: Yes (Other)
  Sender: FDA-Public Use
  Company Number: BE-WYE-H06188708

PATIENT
  Age: 74 Year
  Sex: Female

DRUGS (7)
  1. CORDARONE [Suspect]
     Indication: CARDIAC FIBRILLATION
     Route: 048
  2. CORDARONE [Suspect]
     Indication: CARDIAC FLUTTER
  3. OESTRADIOL [Concomitant]
  4. SIMVASTATIN [Concomitant]
  5. ASPIRIN [Concomitant]
  6. APOCARD [Concomitant]
     Dosage: 150 MG, FREQUENCY UNSPECIFIED
  7. BISOPROLOL FUMARATE [Concomitant]
     Dosage: 0.5 UNIT, FREQUENCY UNSPECIFIED

REACTIONS (1)
  - CATARACT NUCLEAR [None]
